FAERS Safety Report 5761039-7 (Version None)
Quarter: 2008Q2

REPORT INFORMATION
  Report Type: 
  Country: None (occurrence: None)
  Receive Date: 20080606
  Receipt Date: 20080602
  Transmission Date: 20081010
  Serious: Yes (Hospitalization)
  Sender: FDA-Public Use
  Company Number: US-GILEAD-2008-0016315

PATIENT
  Sex: Female

DRUGS (10)
  1. LETAIRIS [Suspect]
     Indication: PULMONARY ARTERIAL HYPERTENSION
     Route: 048
  2. NOVOLIN 70/30 [Concomitant]
     Dosage: 70/30
     Route: 058
  3. ZOLOFT [Concomitant]
  4. PLAVIX [Concomitant]
  5. VYTORIN [Concomitant]
     Dosage: 10/80
  6. VALIUM [Concomitant]
  7. PREDNISONE TAB [Concomitant]
  8. NEURONTIN [Concomitant]
  9. NITROGLYCERIN [Concomitant]
  10. SEROQUEL [Concomitant]

REACTIONS (4)
  - DECREASED APPETITE [None]
  - DYSPNOEA [None]
  - FATIGUE [None]
  - SINUS DISORDER [None]
